FAERS Safety Report 5085740-6 (Version None)
Quarter: 2006Q3

REPORT INFORMATION
  Report Type: 
  Country: None (occurrence: None)
  Receive Date: 20060822
  Receipt Date: 20060809
  Transmission Date: 20061208
  Serious: Yes (Hospitalization)
  Sender: FDA-Public Use
  Company Number: US-KINGPHARMUSA00001-K200601026

PATIENT
  Age: 83 Year
  Sex: Female

DRUGS (3)
  1. ALTACE [Suspect]
     Indication: ESSENTIAL HYPERTENSION
     Route: 048
     Dates: end: 20060706
  2. LASILIX [Concomitant]
     Indication: ESSENTIAL HYPERTENSION
     Dosage: UNK, QD
     Route: 048
  3. KREDEX [Concomitant]
     Indication: CARDIAC FAILURE
     Dosage: UNK, QD
     Route: 048

REACTIONS (5)
  - DEHYDRATION [None]
  - HYPERKALAEMIA [None]
  - KIDNEY SMALL [None]
  - RENAL CYST [None]
  - RENAL FAILURE ACUTE [None]
